FAERS Safety Report 24983158 (Version 1)
Quarter: 2025Q1

REPORT INFORMATION
  Report Type: Report from Study
  Country: US (occurrence: US)
  Receive Date: 20250218
  Receipt Date: 20250218
  Transmission Date: 20250409
  Serious: No
  Sender: SANDOZ
  Company Number: US-SANDOZ-SDZ2025US009221

PATIENT
  Age: 56 Year
  Sex: Male

DRUGS (1)
  1. GLATOPA [Suspect]
     Active Substance: GLATIRAMER ACETATE
     Indication: Product used for unknown indication
     Route: 030
     Dates: start: 20250212

REACTIONS (3)
  - Drug ineffective [Unknown]
  - Device difficult to use [Unknown]
  - Device issue [Unknown]

NARRATIVE: CASE EVENT DATE: 20250201
